FAERS Safety Report 24539619 (Version 1)
Quarter: 2024Q4

REPORT INFORMATION
  Report Type: Spontaneous
  Country: US (occurrence: None)
  Receive Date: 20241022
  Receipt Date: 20241022
  Transmission Date: 20250115
  Serious: No
  Sender: Public
  Company Number: None

PATIENT
  Age: 48 Year
  Sex: Female
  Weight: 95.4 kg

DRUGS (1)
  1. EMGALITY [Suspect]
     Active Substance: GALCANEZUMAB-GNLM
     Dosage: OTHER FREQUENCY : ONCE;?
     Route: 058
     Dates: start: 20241022

REACTIONS (2)
  - Pruritus [None]
  - Lip swelling [None]

NARRATIVE: CASE EVENT DATE: 20241022
